FAERS Safety Report 7470436-3 (Version None)
Quarter: 2011Q2

REPORT INFORMATION
  Report Type: 
  Country: None (occurrence: None)
  Receive Date: 20110510
  Receipt Date: 20110406
  Transmission Date: 20111010
  Serious: No
  Sender: FDA-Public Use
  Company Number: US-BAYER-2011-031038

PATIENT
  Age: 21 Year
  Sex: Female
  Weight: 59 kg

DRUGS (1)
  1. ALEVE (CAPLET) [Suspect]
     Dosage: 440 MG, TID, BOTTLE COUNT 130CT
     Route: 048
     Dates: start: 20110405

REACTIONS (1)
  - NAUSEA [None]
